FAERS Safety Report 23697014 (Version 1)
Quarter: 2024Q2

REPORT INFORMATION
  Report Type: Spontaneous
  Country: US (occurrence: None)
  Receive Date: 20240401
  Receipt Date: 20240401
  Transmission Date: 20240716
  Serious: Yes (unspecified)
  Sender: FDA-Public Use
  Company Number: None

PATIENT
  Age: 65 Year
  Sex: Male
  Weight: 78.3 kg

DRUGS (5)
  1. RITUXIMAB-ABBS [Suspect]
     Active Substance: RITUXIMAB-ABBS
     Indication: Follicular lymphoma stage IV
     Dosage: 800 MG EVERY 3 WEEKS INTRAVENOUS DRIP?
     Route: 041
     Dates: start: 20240226
  2. FOSAPREPITANT [Concomitant]
     Active Substance: FOSAPREPITANT
     Dates: start: 20240226
  3. CYCLOPHOSPHAMIDE [Concomitant]
     Active Substance: CYCLOPHOSPHAMIDE
     Dates: start: 20240226
  4. DOXORUBICIN [Concomitant]
     Active Substance: DOXORUBICIN
     Dates: start: 20240226
  5. VINCRISTINE [Concomitant]
     Active Substance: VINCRISTINE
     Dates: start: 20240226

REACTIONS (6)
  - Infusion related reaction [None]
  - Pruritus [None]
  - Paraesthesia ear [None]
  - Dyspnoea [None]
  - Flushing [None]
  - Therapy interrupted [None]

NARRATIVE: CASE EVENT DATE: 20240319
